FAERS Safety Report 9194511 (Version 1)
Quarter: 2013Q1

REPORT INFORMATION
  Report Type: Spontaneous
  Country: US (occurrence: US)
  Receive Date: 20130327
  Receipt Date: 20130327
  Transmission Date: 20140127
  Serious: No
  Sender: FDA-Public Use
  Company Number: US-ALLERGAN-1206164US

PATIENT
  Sex: Female

DRUGS (4)
  1. LATISSE 0.03% [Suspect]
     Indication: GROWTH OF EYELASHES
     Dosage: 2 GTT, QHS
     Route: 061
     Dates: start: 201203
  2. LATISSE 0.03% [Suspect]
     Dosage: 2 GTT, QHS
     Route: 061
     Dates: start: 201204
  3. VISINE                             /00256502/ [Concomitant]
     Indication: OCULAR HYPERAEMIA
     Dosage: 2 GTT, PRN
     Route: 047
  4. EYELASH ENHANCERS [Concomitant]

REACTIONS (5)
  - Wrong technique in drug usage process [Unknown]
  - Incorrect dose administered [Unknown]
  - Hair texture abnormal [Unknown]
  - Trichorrhexis [Recovered/Resolved]
  - Drug ineffective [Unknown]
